FAERS Safety Report 11758763 (Version 1)
Quarter: 2015Q4

REPORT INFORMATION
  Report Type: Spontaneous
  Country: US (occurrence: US)
  Receive Date: 20151120
  Receipt Date: 20151120
  Transmission Date: 20160304
  Serious: No
  Sender: FDA-Public Use
  Company Number: US-ELI_LILLY_AND_COMPANY-US201209003417

PATIENT
  Age: 63 Year
  Sex: Female

DRUGS (2)
  1. FORTEO [Suspect]
     Active Substance: TERIPARATIDE
     Dosage: 20 UG, QD
     Dates: start: 201204, end: 201205
  2. FORTEO [Suspect]
     Active Substance: TERIPARATIDE
     Dosage: 20 UG, QD
     Dates: start: 20110601, end: 201203

REACTIONS (6)
  - Coeliac disease [Unknown]
  - Dry skin [Unknown]
  - Rash [Unknown]
  - Pruritus [Unknown]
  - Blood iron abnormal [Unknown]
  - Eyelid exfoliation [Unknown]

NARRATIVE: CASE EVENT DATE: 201106
